FAERS Safety Report 10187539 (Version 1)
Quarter: 2014Q2

REPORT INFORMATION
  Report Type: Spontaneous
  Country: US (occurrence: US)
  Receive Date: 20140522
  Receipt Date: 20140522
  Transmission Date: 20141212
  Serious: No
  Sender: FDA-Public Use
  Company Number: US-SANOFI-AVENTIS-2013SA075775

PATIENT
  Age: 49 Year
  Sex: Female

DRUGS (3)
  1. LANTUS SOLOSTAR [Suspect]
     Indication: DIABETES MELLITUS
     Dosage: DOSE:29 UNIT(S)
     Route: 051
     Dates: start: 201301
  2. SOLOSTAR [Suspect]
     Indication: DIABETES MELLITUS
     Dates: start: 201301
  3. HUMALOG [Suspect]
     Route: 065

REACTIONS (1)
  - Diabetes mellitus inadequate control [Unknown]
